FAERS Safety Report 4324267-3 (Version None)
Quarter: 2004Q1

REPORT INFORMATION
  Report Type: 
  Country: None (occurrence: None)
  Receive Date: 20040326
  Receipt Date: 20040119
  Transmission Date: 20041129
  Serious: No
  Sender: FDA-Public Use
  Company Number: US-GLAXOSMITHKLINE-A0493917A

PATIENT
  Age: 52 Year
  Sex: Female

DRUGS (7)
  1. ADVAIR DISKUS 100/50 [Suspect]
     Indication: ASTHMA
     Dosage: 1PUFF TWICE PER DAY
     Route: 055
     Dates: start: 20040115, end: 20040115
  2. FLOVENT [Suspect]
     Indication: ASTHMA
     Route: 055
  3. SEREVENT [Suspect]
     Indication: ASTHMA
     Route: 055
  4. VITAMIN C [Concomitant]
  5. VENTOLIN HFA [Concomitant]
     Route: 055
  6. IBUPROFEN [Concomitant]
  7. CECLOR [Concomitant]

REACTIONS (2)
  - DYSPNOEA [None]
  - WHEEZING [None]
